FAERS Safety Report 15647345 (Version 1)
Quarter: 2018Q4

REPORT INFORMATION
  Report Type: Spontaneous
  Country: ES (occurrence: ES)
  Receive Date: 20181122
  Receipt Date: 20181122
  Transmission Date: 20190205
  Serious: Yes (Other)
  Sender: FDA-Public Use
  Company Number: ES-TEVA-2018-ES-977215

PATIENT
  Age: 3 Decade
  Sex: Female

DRUGS (6)
  1. ETOPOSIDE. [Suspect]
     Active Substance: ETOPOSIDE
     Indication: SMALL CELL CARCINOMA
  2. CISPLATIN. [Suspect]
     Active Substance: CISPLATIN
     Indication: NEUROENDOCRINE CARCINOMA
     Dosage: FOR 2 CYCLES AT REDUCED DOSES
     Route: 065
  3. CISPLATIN. [Suspect]
     Active Substance: CISPLATIN
     Indication: SMALL CELL CARCINOMA
  4. ETOPOSIDE. [Suspect]
     Active Substance: ETOPOSIDE
     Indication: LARYNGEAL CANCER STAGE IV
     Dosage: 100 MG/M2 DAYS 1, 2 AND 3 EVERY 21 DAYS FOR 3 CYCLES
     Route: 065
  5. ETOPOSIDE. [Suspect]
     Active Substance: ETOPOSIDE
     Indication: NEUROENDOCRINE CARCINOMA
     Dosage: FOR 2 CYCLES AT REDUCED DOSES
     Route: 065
  6. CISPLATIN. [Suspect]
     Active Substance: CISPLATIN
     Indication: LARYNGEAL CANCER STAGE IV
     Dosage: ON DAY 1 FOR 3 CYCLES
     Route: 065

REACTIONS (1)
  - Drug effect incomplete [Unknown]
